FAERS Safety Report 18292707 (Version 2)
Quarter: 2020Q4

REPORT INFORMATION
  Report Type: Spontaneous
  Country: US (occurrence: US)
  Receive Date: 20200921
  Receipt Date: 20201124
  Transmission Date: 20210113
  Serious: No
  Sender: FDA-Public Use
  Company Number: US-BRISTOL-MYERS SQUIBB COMPANY-BMS-2020-077024

PATIENT
  Sex: Female

DRUGS (1)
  1. ORENCIA [Suspect]
     Active Substance: ABATACEPT
     Indication: SYSTEMIC LUPUS ERYTHEMATOSUS
     Dosage: 750 MILLIGRAM, Q4WK
     Route: 042
     Dates: start: 20200820

REACTIONS (4)
  - Headache [Unknown]
  - Nausea [Unknown]
  - Intentional product use issue [Unknown]
  - Vomiting [Unknown]
